FAERS Safety Report 6952467-2 (Version None)
Quarter: 2010Q3

REPORT INFORMATION
  Report Type: 
  Country: None (occurrence: None)
  Receive Date: 20100829
  Receipt Date: 20100505
  Transmission Date: 20110219
  Serious: No
  Sender: FDA-Public Use
  Company Number: US-ABBOTT-10P-163-0643477-00

PATIENT
  Sex: Female
  Weight: 52.664 kg

DRUGS (5)
  1. NIASPAN [Suspect]
     Indication: HIGH DENSITY LIPOPROTEIN DECREASED
     Dosage: 500 MG DAILY AT BEDTIME
     Route: 048
     Dates: start: 20070101
  2. NIASPAN [Suspect]
     Dosage: 500 MG DAILY AT BEDTIME
     Route: 048
     Dates: start: 20100401
  3. CRESTOR [Concomitant]
     Indication: PRODUCT USED FOR UNKNOWN INDICATION
  4. PLAVIX [Concomitant]
     Indication: PRODUCT USED FOR UNKNOWN INDICATION
  5. ASPIRIN [Concomitant]
     Indication: PROPHYLAXIS
     Dosage: 81 MG DAILY AT BEDTIME WITH NIASPAN
     Route: 048

REACTIONS (4)
  - CHEST PAIN [None]
  - DYSPEPSIA [None]
  - FLUSHING [None]
  - INSOMNIA [None]
